FAERS Safety Report 5562429-8 (Version None)
Quarter: 2007Q4

REPORT INFORMATION
  Report Type: 
  Country: None (occurrence: None)
  Receive Date: 20071215
  Receipt Date: 20070508
  Transmission Date: 20080405
  Serious: No
  Sender: FDA-Public Use
  Company Number: US-AMGEN-US222231

PATIENT
  Sex: Female
  Weight: 59 kg

DRUGS (11)
  1. ARANESP [Suspect]
     Indication: ANAEMIA OF MALIGNANT DISEASE
     Route: 058
     Dates: start: 20020820, end: 20070412
  2. ARANESP [Suspect]
     Route: 065
     Dates: start: 20070619
  3. OXYCODONE HYDROCHLORIDE [Concomitant]
     Route: 065
  4. ELAVIL [Concomitant]
     Route: 065
  5. LORTAB [Concomitant]
     Route: 065
  6. NEXIUM [Concomitant]
     Route: 065
  7. FLEXERIL [Concomitant]
     Route: 065
  8. CONCERTA [Concomitant]
     Route: 065
  9. EFFEXOR [Concomitant]
     Route: 065
  10. ZOMETA [Concomitant]
     Route: 065
     Dates: start: 20040201, end: 20050801
  11. VITAMIN B-12 [Concomitant]
     Route: 065
     Dates: start: 20060817

REACTIONS (4)
  - ANAEMIA [None]
  - FATIGUE [None]
  - RENAL FAILURE CHRONIC [None]
  - VITAMIN B12 DEFICIENCY [None]
